FAERS Safety Report 11392291 (Version 2)
Quarter: 2015Q4

REPORT INFORMATION
  Report Type: Report from Study
  Country: US (occurrence: US)
  Receive Date: 20150818
  Receipt Date: 20151001
  Transmission Date: 20160304
  Serious: Yes (Hospitalization)
  Sender: FDA-Public Use
  Company Number: US-ACTELION-A-NJ2015-122607

PATIENT
  Age: 84 Year
  Sex: Male

DRUGS (4)
  1. VENTAVIS [Suspect]
     Active Substance: ILOPROST
     Dosage: 5 MCG, 6-7X/DAY
     Route: 055
     Dates: start: 201507
  2. VENTAVIS [Suspect]
     Active Substance: ILOPROST
     Indication: PULMONARY ARTERIAL HYPERTENSION
     Dosage: 5 MCG, 6-9X/DAY
     Route: 055
     Dates: start: 20140525, end: 201507
  3. LETAIRIS [Concomitant]
     Active Substance: AMBRISENTAN
  4. SILDENAFIL. [Concomitant]
     Active Substance: SILDENAFIL

REACTIONS (2)
  - Cholecystectomy [Recovered/Resolved]
  - Hernia repair [Recovered/Resolved]

NARRATIVE: CASE EVENT DATE: 201507
